FAERS Safety Report 24168444 (Version 1)
Quarter: 2024Q3

REPORT INFORMATION
  Report Type: Spontaneous
  Country: US (occurrence: US)
  Receive Date: 20240802
  Receipt Date: 20240802
  Transmission Date: 20241017
  Serious: No
  Sender: TEVA
  Company Number: US-TEVA-VS-3224471

PATIENT
  Age: 68 Year
  Sex: Female
  Weight: 81.65 kg

DRUGS (3)
  1. CLONAZEPAM [Suspect]
     Active Substance: CLONAZEPAM
     Indication: Back pain
     Dosage: SHE HAS BEEN TAKING IT FOR 25 YEARS FOR VARIOUS SYMPTOMS
     Route: 048
     Dates: start: 1998
  2. CLONAZEPAM [Suspect]
     Active Substance: CLONAZEPAM
     Indication: Back pain
     Route: 048
  3. VALSARTAN [Concomitant]
     Active Substance: VALSARTAN
     Indication: Hypertension
     Route: 065

REACTIONS (5)
  - Dyspepsia [Unknown]
  - Wrong technique in product usage process [Unknown]
  - Product availability issue [Unknown]
  - Product use in unapproved indication [Unknown]
  - Therapeutic response unexpected [Unknown]

NARRATIVE: CASE EVENT DATE: 20240718
